FAERS Safety Report 18228368 (Version 1)
Quarter: 2020Q3

REPORT INFORMATION
  Report Type: Spontaneous
  Country: US (occurrence: US)
  Receive Date: 20200903
  Receipt Date: 20200903
  Transmission Date: 20201103
  Serious: No
  Sender: FDA-Public Use
  Company Number: US-AMAG PHARMACEUTICALS, INC.-AMAG202002784

PATIENT
  Age: 92 Year
  Sex: Female
  Weight: 49.94 kg

DRUGS (2)
  1. FERAHEME [Suspect]
     Active Substance: FERUMOXYTOL NON-STOICHIOMETRIC MAGNETITE
     Indication: IRON DEFICIENCY ANAEMIA
     Dosage: RECEIVED A TOTAL OF 2 IRON INFUSIONS ABOUT 6 MONTHS AGO.
     Route: 042
  2. IRON SUPPLEMENT [Concomitant]
     Active Substance: IRON
     Indication: IRON DEFICIENCY ANAEMIA
     Dosage: ON THEM FOR OVER 1 YEAR, DISCONTINUED AFTER HER FIRST IRON INFUSION ABOUT 6 MONTHS AGO.

REACTIONS (1)
  - Oedema peripheral [Not Recovered/Not Resolved]
